FAERS Safety Report 19594622 (Version 1)
Quarter: 2021Q3

REPORT INFORMATION
  Report Type: Spontaneous
  Country: US (occurrence: US)
  Receive Date: 20210722
  Receipt Date: 20210722
  Transmission Date: 20211014
  Serious: Yes (Other)
  Sender: FDA-Public Use
  Company Number: US-DRREDDYS-SPO/USA/21/0137997

PATIENT
  Age: 21 Year
  Sex: Female

DRUGS (2)
  1. ZENATANE [Suspect]
     Active Substance: ISOTRETINOIN
     Indication: PRODUCT USED FOR UNKNOWN INDICATION
     Dosage: RMA ISSUE DATE:6?APRIL?2021 10:38:34 AM,6?APRIL?2021 10:38:34 AM,6?APRIL?2021 12:16:07 PM,11?MAY?202
     Dates: start: 20210303, end: 20210715
  2. ZENATANE [Suspect]
     Active Substance: ISOTRETINOIN
     Dosage: RMA ISSUE DATE: 03?MARCH?2021  11:02:26 AM
     Dates: end: 20210715

REACTIONS (1)
  - Exposure during pregnancy [Unknown]
